FAERS Safety Report 8287079-4 (Version None)
Quarter: 2012Q2

REPORT INFORMATION
  Report Type: 
  Country: None (occurrence: None)
  Receive Date: 20120416
  Receipt Date: 20111116
  Transmission Date: 20120825
  Serious: No
  Sender: FDA-Public Use
  Company Number: US-ALLERGAN-1115049US

PATIENT
  Age: 85 Year
  Sex: Male

DRUGS (3)
  1. ZYMAXID [Suspect]
     Indication: POSTOPERATIVE CARE
     Dosage: 1 UNK, UNK
     Route: 047
     Dates: start: 20111027, end: 20111029
  2. DUREZOL [Concomitant]
     Indication: PRODUCT USED FOR UNKNOWN INDICATION
     Dosage: UNK
     Route: 047
  3. NEVANAC [Concomitant]
     Indication: PRODUCT USED FOR UNKNOWN INDICATION
     Dosage: UNK
     Route: 047

REACTIONS (2)
  - EYELIDS PRURITUS [None]
  - ERYTHEMA [None]
